FAERS Safety Report 9308170 (Version 1)
Quarter: 2013Q2

REPORT INFORMATION
  Report Type: Spontaneous
  Country: US (occurrence: US)
  Receive Date: 20130524
  Receipt Date: 20130524
  Transmission Date: 20140414
  Serious: Yes (Other)
  Sender: FDA-Public Use
  Company Number: US-BAYER-2013-061585

PATIENT
  Age: 83 Year
  Sex: Male
  Weight: 81.63 kg

DRUGS (8)
  1. ALEVE CAPLET [Suspect]
     Indication: OSTEOARTHRITIS
     Dosage: UNK
     Dates: end: 20130308
  2. CELEBREX [Suspect]
     Indication: OSTEOARTHRITIS
     Dosage: 200 MG, QD
     Dates: start: 20130212, end: 20130308
  3. CELEBREX [Suspect]
     Indication: ARTHRALGIA
     Dosage: 200 MG, QD
     Route: 048
     Dates: start: 20130306, end: 20130309
  4. FINASTERIDE [Concomitant]
     Dosage: 5 MG, DAILY
     Route: 048
  5. CLOPIDOGREL [Concomitant]
     Dosage: 75 MG, DAILY
  6. HYDROCHLOROTHIAZID [Concomitant]
     Dosage: 50 MG, UNK
  7. SIMVASTATIN [Concomitant]
     Indication: BLOOD CHOLESTEROL INCREASED
     Dosage: 40 MG, UNK
  8. METOPROLOL [Concomitant]
     Dosage: 25 MG, BID
     Route: 048

REACTIONS (2)
  - Rectal haemorrhage [Recovered/Resolved]
  - Gastrointestinal haemorrhage [Recovered/Resolved]
